FAERS Safety Report 15699936 (Version 1)
Quarter: 2018Q4

REPORT INFORMATION
  Report Type: Spontaneous
  Country: US (occurrence: US)
  Receive Date: 20181126
  Receipt Date: 20181126
  Transmission Date: 20190205
  Serious: No
  Sender: FDA-Public Use
  Company Number: None

PATIENT
  Age: 46 Year
  Sex: Female

DRUGS (10)
  1. LORAZAPAM [Concomitant]
     Active Substance: LORAZEPAM
  2. ONDANSETRON [Concomitant]
     Active Substance: ONDANSETRON
  3. SUMATRIPTAN. [Concomitant]
     Active Substance: SUMATRIPTAN
  4. NORETHINDRONE. [Concomitant]
     Active Substance: NORETHINDRONE
  5. LEVOTHYROXINE. [Concomitant]
     Active Substance: LEVOTHYROXINE
  6. MYCOPHENOLATE [Concomitant]
     Active Substance: MYCOPHENOLIC ACID
  7. PROCHLORPERAZINE. [Concomitant]
     Active Substance: PROCHLORPERAZINE
  8. LOPERAMIDE [Concomitant]
     Active Substance: LOPERAMIDE
  9. OXYCODONE [Concomitant]
     Active Substance: OXYCODONE
  10. TACROLIMUS. [Suspect]
     Active Substance: TACROLIMUS
     Indication: GRAFT VERSUS HOST DISEASE
     Route: 048
     Dates: start: 20180724

REACTIONS (3)
  - Post transplant distal limb syndrome [None]
  - Neuralgia [None]
  - Therapy non-responder [None]

NARRATIVE: CASE EVENT DATE: 20180813
